FAERS Safety Report 20080110 (Version 2)
Quarter: 2021Q4

REPORT INFORMATION
  Report Type: Spontaneous
  Country: US (occurrence: US)
  Receive Date: 20211117
  Receipt Date: 20211205
  Transmission Date: 20220303
  Serious: Yes (Hospitalization, Other)
  Sender: FDA-Public Use
  Company Number: US-CPL-002641

PATIENT
  Age: 74 Year
  Sex: Male
  Weight: 93 kg

DRUGS (11)
  1. ROSUVASTATIN [Interacting]
     Active Substance: ROSUVASTATIN
     Indication: Hyperlipidaemia
     Dosage: 40 MG DAILY
  2. TICAGRELOR [Interacting]
     Active Substance: TICAGRELOR
     Indication: Acute coronary syndrome
     Dosage: 90 MG TWICE DAILY
  3. EZETIMIBE [Concomitant]
     Active Substance: EZETIMIBE
     Dosage: 10 MG DAILY
  4. ASPIRIN [Concomitant]
     Active Substance: ASPIRIN
     Dosage: 81 MG DAILY
  5. LISINOPRIL [Concomitant]
     Active Substance: LISINOPRIL
     Dosage: 5 MG EVERY OTHER DAY
  6. METOPROLOL SUCCINATE [Concomitant]
     Active Substance: METOPROLOL SUCCINATE
     Dosage: 50 MG DAILY
  7. VERAPAMIL [Concomitant]
     Active Substance: VERAPAMIL HYDROCHLORIDE
     Dosage: 120 MG DAILY
  8. TAMSULOSIN [Concomitant]
     Active Substance: TAMSULOSIN
     Dosage: 0.4 MG DAILY
  9. DUTASTERIDE [Concomitant]
     Active Substance: DUTASTERIDE
     Dosage: 0.5 MG DAILY
  10. COLCHICINE [Concomitant]
     Active Substance: COLCHICINE
     Dosage: 0.6 MG EVERY OTHER DAY
  11. GABAPENTIN [Concomitant]
     Active Substance: GABAPENTIN
     Dosage: 600 MG NIGHTLY

REACTIONS (2)
  - Drug interaction [Unknown]
  - Rhabdomyolysis [Recovered/Resolved]
